FAERS Safety Report 17160300 (Version 1)
Quarter: 2019Q4

REPORT INFORMATION
  Report Type: Spontaneous
  Country: US (occurrence: US)
  Receive Date: 20191216
  Receipt Date: 20191216
  Transmission Date: 20200122
  Serious: Yes (Hospitalization)
  Sender: FDA-Public Use
  Company Number: US-PFIZER INC-2019538427

PATIENT
  Age: 94 Year
  Sex: Male
  Weight: 79.38 kg

DRUGS (1)
  1. LIPITOR [Suspect]
     Active Substance: ATORVASTATIN CALCIUM
     Indication: MYOCARDIAL INFARCTION
     Dosage: 60 MG, 4 DAYS A WEEK)

REACTIONS (5)
  - Pharyngitis [Recovered/Resolved]
  - Off label use [Unknown]
  - Hypoacusis [Unknown]
  - Drug ineffective [Unknown]
  - Lung disorder [Recovered/Resolved]

NARRATIVE: CASE EVENT DATE: 201912
